FAERS Safety Report 25336972 (Version 1)
Quarter: 2025Q2

REPORT INFORMATION
  Report Type: Spontaneous
  Country: CN (occurrence: CN)
  Receive Date: 20250520
  Receipt Date: 20250520
  Transmission Date: 20250717
  Serious: Yes (Hospitalization, Other)
  Sender: SANOFI AVENTIS
  Company Number: CN-SA-2025SA138225

PATIENT
  Age: 72 Year
  Sex: Female

DRUGS (4)
  1. DUPILUMAB [Suspect]
     Active Substance: DUPILUMAB
     Indication: Dermatitis atopic
     Route: 058
     Dates: start: 2024, end: 2024
  2. DUPILUMAB [Suspect]
     Active Substance: DUPILUMAB
     Dates: start: 2024, end: 2024
  3. ITRACONAZOLE [Concomitant]
     Active Substance: ITRACONAZOLE
     Indication: Tinea cruris
     Dosage: 0.2 G, BID
     Route: 048
     Dates: start: 202406
  4. ACRIVASTINE [Concomitant]
     Active Substance: ACRIVASTINE
     Indication: Tinea cruris
     Dosage: 8 MG, BID
     Route: 048
     Dates: start: 202406

REACTIONS (15)
  - Generalised pustular psoriasis [Recovering/Resolving]
  - Erythema [Recovering/Resolving]
  - Pustule [Recovering/Resolving]
  - Skin exfoliation [Recovering/Resolving]
  - Oedema [Recovering/Resolving]
  - Skin weeping [Recovering/Resolving]
  - Swelling [Recovering/Resolving]
  - Skin weeping [Recovering/Resolving]
  - Swelling face [Recovering/Resolving]
  - Tenderness [Recovering/Resolving]
  - Rash [Recovering/Resolving]
  - Ulcer [Recovering/Resolving]
  - Pain [Recovering/Resolving]
  - Hyperpyrexia [Recovering/Resolving]
  - Staphylococcal infection [Recovering/Resolving]

NARRATIVE: CASE EVENT DATE: 20240701
